FAERS Safety Report 10314683 (Version 3)
Quarter: 2014Q4

REPORT INFORMATION
  Report Type: Report from Study
  Country: BE (occurrence: BE)
  Receive Date: 20140718
  Receipt Date: 20141011
  Transmission Date: 20150528
  Serious: Yes (Life-Threatening, Hospitalization, Other)
  Sender: FDA-Public Use
  Company Number: BE-ASTRAZENECA-2014SE51404

PATIENT
  Age: 61 Year
  Sex: Male

DRUGS (4)
  1. SIMVASTATIN. [Concomitant]
     Active Substance: SIMVASTATIN
     Route: 048
     Dates: start: 20131121
  2. TICAGRELOR [Suspect]
     Active Substance: TICAGRELOR
     Indication: ATHEROSCLEROSIS PROPHYLAXIS
     Route: 048
     Dates: start: 20131127, end: 20140618
  3. PROPRANOLOL [Concomitant]
     Active Substance: PROPRANOLOL\PROPRANOLOL HYDROCHLORIDE
     Indication: MIGRAINE
     Route: 048
     Dates: start: 20090215
  4. ACETYLSALICYLIC ACID (NON-AZ DRUG) [Suspect]
     Active Substance: ASPIRIN
     Indication: ATHEROSCLEROSIS PROPHYLAXIS
     Route: 048
     Dates: start: 20090215

REACTIONS (6)
  - Large intestine perforation [Recovered/Resolved with Sequelae]
  - Serositis [Recovered/Resolved with Sequelae]
  - Gastrointestinal haemorrhage [Recovered/Resolved with Sequelae]
  - Syncope [Recovered/Resolved with Sequelae]
  - Intestinal ischaemia [Recovered/Resolved with Sequelae]
  - Gastrointestinal telangiectasia [Recovered/Resolved with Sequelae]

NARRATIVE: CASE EVENT DATE: 20140617
